FAERS Safety Report 17028059 (Version 1)
Quarter: 2019Q4

REPORT INFORMATION
  Report Type: Spontaneous
  Country: US (occurrence: US)
  Receive Date: 20191010
  Receipt Date: 20191010
  Transmission Date: 20200122
  Serious: No
  Sender: FDA-Public Use
  Company Number: None

PATIENT
  Age: 74 Year
  Sex: Female

DRUGS (7)
  1. LEVOTHYROXIN [Concomitant]
     Active Substance: LEVOTHYROXINE
  2. URSODIOL. [Concomitant]
     Active Substance: URSODIOL
  3. LISINOPRIL. [Suspect]
     Active Substance: LISINOPRIL
  4. OCALIVA [Suspect]
     Active Substance: OBETICHOLIC ACID
     Indication: PRIMARY BILIARY CHOLANGITIS
     Route: 048
     Dates: start: 20190723
  5. SIMVASTATIN. [Concomitant]
     Active Substance: SIMVASTATIN
  6. OMEPRAZOLE. [Concomitant]
     Active Substance: OMEPRAZOLE
  7. GABAPENTIN. [Concomitant]
     Active Substance: GABAPENTIN

REACTIONS (3)
  - Dyspepsia [None]
  - Abdominal pain upper [None]
  - Nausea [None]

NARRATIVE: CASE EVENT DATE: 201909
